FAERS Safety Report 7671401-3 (Version None)
Quarter: 2011Q3

REPORT INFORMATION
  Report Type: 
  Country: None (occurrence: None)
  Receive Date: 20110809
  Receipt Date: 20110726
  Transmission Date: 20111222
  Serious: Yes (Death)
  Sender: FDA-Public Use
  Company Number: US-ELI_LILLY_AND_COMPANY-US201107007140

PATIENT
  Sex: Female

DRUGS (3)
  1. WELLBUTRIN [Concomitant]
  2. BUSPAR [Concomitant]
     Dosage: UNK
     Dates: start: 20110718
  3. ZYPREXA ZYDIS [Suspect]
     Indication: DEPRESSION
     Dosage: 5 MG, UNK
     Dates: start: 20110718

REACTIONS (2)
  - OFF LABEL USE [None]
  - COMPLETED SUICIDE [None]
